FAERS Safety Report 13735354 (Version 1)
Quarter: 2017Q3

REPORT INFORMATION
  Report Type: Spontaneous
  Country: US (occurrence: US)
  Receive Date: 20170707
  Receipt Date: 20170707
  Transmission Date: 20171127
  Serious: Yes (Other)
  Sender: FDA-Public Use
  Company Number: None

PATIENT

DRUGS (2)
  1. HYDROXYZINE [Suspect]
     Active Substance: HYDROXYZINE HYDROCHLORIDE
     Indication: ANXIETY
     Dosage: ?          OTHER STRENGTH:MG;QUANTITY:20 TABLET(S);?
     Route: 048
     Dates: start: 20170610, end: 20170616
  2. HYDROXYZINE [Suspect]
     Active Substance: HYDROXYZINE HYDROCHLORIDE
     Indication: PANIC ATTACK
     Dosage: ?          OTHER STRENGTH:MG;QUANTITY:20 TABLET(S);?
     Route: 048
     Dates: start: 20170610, end: 20170616

REACTIONS (2)
  - Hallucination [None]
  - Abnormal dreams [None]

NARRATIVE: CASE EVENT DATE: 20170616
